FAERS Safety Report 8565127-1 (Version None)
Quarter: 2012Q3

REPORT INFORMATION
  Report Type: 
  Country: None (occurrence: None)
  Receive Date: 20120803
  Receipt Date: 20120801
  Transmission Date: 20120928
  Serious: Yes (Other)
  Sender: FDA-Public Use
  Company Number: US-PFIZER INC-2012168933

PATIENT
  Sex: Female
  Weight: 135 kg

DRUGS (4)
  1. XANAX [Concomitant]
     Indication: SLEEP DISORDER
     Dosage: 2 MG,DAILY
     Route: 048
  2. AMITRIPTYLINE [Concomitant]
     Indication: SLEEP DISORDER
     Dosage: 25 MG,DAILY
  3. EFFEXOR [Suspect]
     Indication: DEPRESSION
     Dosage: 300MG IN A DAY
     Route: 048
  4. THYROID TAB [Concomitant]
     Indication: THYROID DISORDER
     Dosage: 90 MG, 2X/DAY
     Route: 048

REACTIONS (2)
  - BLOOD CHOLESTEROL INCREASED [None]
  - GLUCOSE TOLERANCE IMPAIRED [None]
